FAERS Safety Report 4734630-4 (Version None)
Quarter: 2005Q3

REPORT INFORMATION
  Report Type: 
  Country: None (occurrence: None)
  Receive Date: 20050802
  Receipt Date: 20050719
  Transmission Date: 20060218
  Serious: Yes (Hospitalization)
  Sender: FDA-Public Use
  Company Number: 2005BI008405

PATIENT
  Age: 39 Year
  Sex: Male

DRUGS (9)
  1. AVONEX [Suspect]
     Indication: MULTIPLE SCLEROSIS
     Dosage: 30 UG QW IM
     Route: 030
     Dates: start: 19980413, end: 20030821
  2. AVONEX [Suspect]
     Indication: MULTIPLE SCLEROSIS
     Dosage: 30 UG QW IM
     Route: 030
     Dates: start: 20030821, end: 20050321
  3. SYMMETREL [Concomitant]
  4. ELAVIL [Concomitant]
  5. ZOLOFT [Concomitant]
  6. ZANTAC [Concomitant]
  7. MOTRIN [Concomitant]
  8. BACLOFEN [Concomitant]
  9. VITAMIN [Concomitant]

REACTIONS (5)
  - CYSTITIS [None]
  - PNEUMONIA [None]
  - SERRATIA INFECTION [None]
  - URINARY TRACT INFECTION [None]
  - URINARY TRACT INFECTION PSEUDOMONAL [None]
